APPROVED DRUG PRODUCT: VERAPAMIL HYDROCHLORIDE
Active Ingredient: VERAPAMIL HYDROCHLORIDE
Strength: 80MG
Dosage Form/Route: TABLET;ORAL
Application: A072124 | Product #001
Applicant: PLIVA INC
Approved: Jan 26, 1989 | RLD: No | RS: No | Type: DISCN